FAERS Safety Report 21175825 (Version 1)
Quarter: 2022Q3

REPORT INFORMATION
  Report Type: Report from Study
  Country: BR (occurrence: BR)
  Receive Date: 20220805
  Receipt Date: 20220805
  Transmission Date: 20221026
  Serious: Yes (Other)
  Sender: FDA-Public Use
  Company Number: BR-JNJFOC-20220759909

PATIENT
  Sex: Male

DRUGS (2)
  1. SPRAVATO [Suspect]
     Active Substance: ESKETAMINE
     Indication: Product used for unknown indication
     Dates: start: 20220314
  2. SPRAVATO [Suspect]
     Active Substance: ESKETAMINE
     Dates: start: 20220525

REACTIONS (5)
  - Psychotic symptom [Recovered/Resolved]
  - Morbid thoughts [Recovering/Resolving]
  - Flat affect [Not Recovered/Not Resolved]
  - Anxiety [Recovering/Resolving]
  - Depressed mood [Recovering/Resolving]

NARRATIVE: CASE EVENT DATE: 20220101
